FAERS Safety Report 17207464 (Version 3)
Quarter: 2020Q1

REPORT INFORMATION
  Report Type: Spontaneous
  Country: CA (occurrence: CA)
  Receive Date: 20191227
  Receipt Date: 20200320
  Transmission Date: 20200409
  Serious: Yes (Other)
  Sender: FDA-Public Use
  Company Number: CA-PFIZER INC-2019554760

PATIENT
  Age: 61 Year
  Sex: Male

DRUGS (8)
  1. PANTOPRAZOLE [Suspect]
     Active Substance: PANTOPRAZOLE
     Indication: POST CARDIAC ARREST SYNDROME
  2. ASA [Suspect]
     Active Substance: ASPIRIN
     Indication: POST CARDIAC ARREST SYNDROME
  3. NITROGLYCERIN. [Suspect]
     Active Substance: NITROGLYCERIN
     Indication: POST CARDIAC ARREST SYNDROME
  4. METOPROLOL. [Suspect]
     Active Substance: METOPROLOL
     Indication: POST CARDIAC ARREST SYNDROME
  5. ACETAMINOPHEN. [Suspect]
     Active Substance: ACETAMINOPHEN
     Indication: POST CARDIAC ARREST SYNDROME
     Dosage: 2 G, 1X/DAY
  6. TICAGRELOR. [Suspect]
     Active Substance: TICAGRELOR
     Indication: POST CARDIAC ARREST SYNDROME
  7. HEPARIN SODIUM. [Suspect]
     Active Substance: HEPARIN SODIUM
     Indication: POST CARDIAC ARREST SYNDROME
  8. PERINDOPRIL [Suspect]
     Active Substance: PERINDOPRIL
     Indication: POST CARDIAC ARREST SYNDROME

REACTIONS (3)
  - Product use in unapproved indication [Recovering/Resolving]
  - Liver injury [Recovering/Resolving]
  - Off label use [Unknown]
